FAERS Safety Report 22292726 (Version 4)
Quarter: 2023Q2

REPORT INFORMATION
  Report Type: Report from Study
  Country: US (occurrence: US)
  Receive Date: 20230508
  Receipt Date: 20230613
  Transmission Date: 20230721
  Serious: Yes (Other)
  Sender: FDA-Public Use
  Company Number: US-ABBVIE-4756691

PATIENT
  Age: 61 Year
  Sex: Male

DRUGS (2)
  1. IMBRUVICA [Suspect]
     Active Substance: IBRUTINIB
     Indication: B-cell small lymphocytic lymphoma
     Dosage: FORM STRENGTH: 560MG
     Route: 048
     Dates: start: 20220801
  2. IMBRUVICA [Suspect]
     Active Substance: IBRUTINIB
     Indication: B-cell small lymphocytic lymphoma
     Dosage: FORM STRENGTH: 560MG
     Route: 048

REACTIONS (6)
  - Cataract [Recovering/Resolving]
  - Scab [Recovered/Resolved]
  - Posterior capsule opacification [Unknown]
  - Increased tendency to bruise [Unknown]
  - Foreign body sensation in eyes [Unknown]
  - Haemorrhagic diathesis [Recovered/Resolved]

NARRATIVE: CASE EVENT DATE: 20230501
